FAERS Safety Report 22823572 (Version 2)
Quarter: 2024Q2

REPORT INFORMATION
  Report Type: Spontaneous
  Country: CN (occurrence: CN)
  Receive Date: 20230815
  Receipt Date: 20240619
  Transmission Date: 20240715
  Serious: Yes (Other)
  Sender: FDA-Public Use
  Company Number: CN-PFIZER INC-PV202300139269

PATIENT
  Age: 10 Year
  Sex: Female
  Weight: 29.3 kg

DRUGS (2)
  1. MITOXANTRONE HYDROCHLORIDE [Suspect]
     Active Substance: MITOXANTRONE HYDROCHLORIDE
     Indication: Chemotherapy
     Dosage: 10.9 MG, 2X/DAY
     Route: 041
     Dates: start: 20230731, end: 20230731
  2. CYTARABINE [Concomitant]
     Active Substance: CYTARABINE
     Indication: Chemotherapy
     Dosage: 1090 MG, 2X/DAY
     Route: 041
     Dates: start: 20230731, end: 20230731

REACTIONS (1)
  - Vomiting [Recovered/Resolved]

NARRATIVE: CASE EVENT DATE: 20230731
